FAERS Safety Report 8199446-8 (Version None)
Quarter: 2012Q1

REPORT INFORMATION
  Report Type: 
  Country: None (occurrence: None)
  Receive Date: 20120309
  Receipt Date: 20120302
  Transmission Date: 20120608
  Serious: Yes (Other)
  Sender: FDA-Public Use
  Company Number: US-PFIZER INC-2012037733

PATIENT
  Sex: Female
  Weight: 61.224 kg

DRUGS (4)
  1. PHOSPHOLINE IODIDE [Suspect]
     Indication: GLAUCOMA
     Dosage: UNK, 2XDAY
     Route: 047
  2. DIOVAN [Concomitant]
     Indication: HYPERTENSION
     Dosage: 80 MG, 2X/DAY
  3. LIPITOR [Concomitant]
     Indication: BLOOD CHOLESTEROL INCREASED
     Dosage: 10MG, DAILY
     Route: 048
  4. TRAVATAN [Concomitant]
     Indication: GLAUCOMA
     Dosage: UNK, DAILY

REACTIONS (3)
  - VISION BLURRED [None]
  - HEADACHE [None]
  - VISUAL ACUITY REDUCED [None]
